FAERS Safety Report 10434411 (Version 1)
Quarter: 2014Q3

REPORT INFORMATION
  Report Type: Spontaneous
  Country: US (occurrence: US)
  Receive Date: 20140905
  Receipt Date: 20140905
  Transmission Date: 20150326
  Serious: No
  Sender: FDA-Public Use
  Company Number: US-ASTRAZENECA-2014SE62777

PATIENT
  Age: 65 Year
  Sex: Female
  Weight: 72.6 kg

DRUGS (3)
  1. SYMBICORT [Suspect]
     Active Substance: BUDESONIDE\FORMOTEROL FUMARATE DIHYDRATE
     Indication: CHRONIC OBSTRUCTIVE PULMONARY DISEASE
     Dosage: 160 4.5 MCG, 1 PUFF , TWO TIMES A DAY
     Route: 055
     Dates: start: 201406, end: 20140816
  2. ROPINIROLE. [Concomitant]
     Active Substance: ROPINIROLE
     Indication: RESTLESS LEGS SYNDROME
  3. SYMBICORT [Suspect]
     Active Substance: BUDESONIDE\FORMOTEROL FUMARATE DIHYDRATE
     Indication: CHRONIC OBSTRUCTIVE PULMONARY DISEASE
     Dosage: 160 4.5 MCG, 1 PUFF, TWO TIMES A DAY
     Route: 055
     Dates: start: 20140819

REACTIONS (5)
  - Labyrinthitis [Unknown]
  - Off label use [Not Recovered/Not Resolved]
  - Drug dose omission [Recovered/Resolved]
  - Dizziness [Recovered/Resolved]
  - Intentional product misuse [Unknown]

NARRATIVE: CASE EVENT DATE: 201406
